FAERS Safety Report 8357623-7 (Version None)
Quarter: 2012Q2

REPORT INFORMATION
  Report Type: 
  Country: None (occurrence: None)
  Receive Date: 20120514
  Receipt Date: 20120509
  Transmission Date: 20120825
  Serious: No
  Sender: FDA-Public Use
  Company Number: US-PFIZER INC-2012113838

PATIENT
  Sex: Female

DRUGS (2)
  1. TIKOSYN [Suspect]
     Dosage: UNK
     Dates: start: 20120401
  2. MOTRIN [Suspect]
     Indication: CHEST PAIN
     Dosage: UNK
     Dates: start: 20120101

REACTIONS (2)
  - WEIGHT BEARING DIFFICULTY [None]
  - CHEST PAIN [None]
